FAERS Safety Report 4821778-9 (Version None)
Quarter: 2005Q4

REPORT INFORMATION
  Report Type: 
  Country: None (occurrence: None)
  Receive Date: 20051103
  Receipt Date: 20051026
  Transmission Date: 20060501
  Serious: Yes (Other)
  Sender: FDA-Public Use
  Company Number: 200513690BCC

PATIENT
  Age: 80 Year
  Sex: Female
  Weight: 49.8957 kg

DRUGS (6)
  1. ALEVE [Suspect]
     Indication: PAIN
     Dosage: 220 MG, BID, ORAL
     Route: 048
     Dates: start: 20050813, end: 20050824
  2. ALEVE [Suspect]
     Indication: SKIN ULCER
     Dosage: 220 MG, BID, ORAL
     Route: 048
     Dates: start: 20050813, end: 20050824
  3. VICODIN [Concomitant]
  4. XANAX [Concomitant]
  5. VITAMINS [Concomitant]
  6. IRON [Concomitant]

REACTIONS (2)
  - HAEMORRHAGE [None]
  - VASCULAR RUPTURE [None]
